FAERS Safety Report 18539459 (Version 1)
Quarter: 2020Q4

REPORT INFORMATION
  Report Type: Spontaneous
  Country: US (occurrence: US)
  Receive Date: 20201124
  Receipt Date: 20201124
  Transmission Date: 20210114
  Serious: Yes (Other)
  Sender: FDA-Public Use
  Company Number: US-AMGEN-USASP2020189084

PATIENT

DRUGS (5)
  1. CARBOPLATIN. [Concomitant]
     Active Substance: CARBOPLATIN
     Indication: HODGKIN^S DISEASE
     Dosage: UNK UNK, CYCLICAL (WITH TARGET AUC OF 5 MG/ML/MIN ON D1)
  2. ETOPOSIDE. [Concomitant]
     Active Substance: ETOPOSIDE
     Indication: HODGKIN^S DISEASE
     Dosage: 100 MILLIGRAM/SQ. METER, QD (CYCLICAL, FROM D1 TO D3)
  3. NEULASTA [Suspect]
     Active Substance: PEGFILGRASTIM
     Indication: PROPHYLAXIS
     Dosage: UNK UNK, AFTER CHEMO (ON D5)
     Route: 065
  4. BORTEZOMIB. [Concomitant]
     Active Substance: BORTEZOMIB
     Indication: HODGKIN^S DISEASE
     Dosage: UNK UNK, CYCLICAL (DOSE LEVELS 0=1MG/M2, 1=1.3MG/M2, 2=1.5 MG/M2 ON DL AND D4)
  5. IFOSFAMIDE/MESNA [Concomitant]
     Active Substance: IFOSFAMIDE\MESNA
     Indication: HODGKIN^S DISEASE
     Dosage: 5 GRAM PER SQUARE METRE, CYCLICAL (ON D1)

REACTIONS (3)
  - Hodgkin^s disease [Unknown]
  - Neutropenia [Unknown]
  - Thrombocytopenia [Unknown]
